FAERS Safety Report 6459740-5 (Version None)
Quarter: 2009Q4

REPORT INFORMATION
  Report Type: 
  Country: None (occurrence: None)
  Receive Date: 20091128
  Receipt Date: 20090922
  Transmission Date: 20100525
  Serious: No
  Sender: FDA-Public Use
  Company Number: US-AMGEN-KDL366036

PATIENT
  Sex: Female
  Weight: 63.1 kg

DRUGS (8)
  1. ENBREL [Suspect]
     Indication: RHEUMATOID ARTHRITIS
     Route: 058
     Dates: start: 20021201, end: 20090701
  2. LISINOPRIL [Concomitant]
     Dates: start: 20030606
  3. LIPITOR [Concomitant]
     Dates: start: 20050601
  4. FOLIC ACID [Concomitant]
     Dates: start: 20050131
  5. HYDROCHLOROTHIAZIDE [Concomitant]
     Dates: start: 20030620
  6. VITAMIN D [Concomitant]
     Dates: start: 20030408
  7. OMEPRAZOLE [Concomitant]
     Dates: start: 20040602
  8. BONIVA [Concomitant]
     Dates: start: 20070911

REACTIONS (2)
  - INJECTION SITE REACTION [None]
  - RASH [None]
